FAERS Safety Report 14777474 (Version 1)
Quarter: 2018Q2

REPORT INFORMATION
  Report Type: Spontaneous
  Country: PL (occurrence: PL)
  Receive Date: 20180419
  Receipt Date: 20180419
  Transmission Date: 20180711
  Serious: Yes (Congenital Anomaly, Other)
  Sender: FDA-Public Use
  Company Number: PL-WEST-WARD PHARMACEUTICALS CORP.-PL-H14001-18-03123

PATIENT
  Age: 10 Month

DRUGS (3)
  1. OXYTOCIN. [Suspect]
     Active Substance: OXYTOCIN
     Indication: PRODUCT USED FOR UNKNOWN INDICATION
     Dosage: ()
     Route: 064
  2. AMOXICILLIN + CLAVULANATE POTASSIUM [Suspect]
     Active Substance: AMOXICILLIN\CLAVULANATE POTASSIUM
     Indication: PRODUCT USED FOR UNKNOWN INDICATION
     Dosage: ()
     Route: 064
  3. DINOPROSTONE. [Suspect]
     Active Substance: DINOPROSTONE
     Indication: PRODUCT USED FOR UNKNOWN INDICATION
     Dosage: ()
     Route: 064

REACTIONS (9)
  - Tachycardia foetal [Unknown]
  - General physical health deterioration [Unknown]
  - Heart rate abnormal [Unknown]
  - Foetal monitoring abnormal [Unknown]
  - Apgar score low [Unknown]
  - Foetal heart rate deceleration abnormality [Unknown]
  - Bradycardia [Unknown]
  - Foetal exposure during pregnancy [Unknown]
  - Premature rupture of membranes [Unknown]

NARRATIVE: CASE EVENT DATE: 20170502
